FAERS Safety Report 8795978 (Version 2)
Quarter: 2012Q4

REPORT INFORMATION
  Report Type: Report from Study
  Country: NL (occurrence: NL)
  Receive Date: 20120919
  Receipt Date: 20121029
  Transmission Date: 20130627
  Serious: Yes (Death, Other)
  Sender: FDA-Public Use
  Company Number: NL-CELGENEUS-114-21880-12091161

PATIENT
  Age: 71 Year
  Sex: Female
  Weight: 72 kg

DRUGS (2)
  1. REVLIMID [Suspect]
     Indication: ACUTE MYELOID LEUKEMIA
     Route: 048
     Dates: start: 20120831, end: 20120907
  2. CYTARABINE [Suspect]
     Indication: ACUTE MYELOID LEUKEMIA
     Route: 041
     Dates: start: 20120831, end: 20120905

REACTIONS (1)
  - Death [Fatal]
